FAERS Safety Report 21232820 (Version 1)
Quarter: 2022Q3

REPORT INFORMATION
  Report Type: Spontaneous
  Country: US (occurrence: US)
  Receive Date: 20220819
  Receipt Date: 20220819
  Transmission Date: 20221027
  Serious: No
  Sender: FDA-Public Use
  Company Number: US-Millicent Holdings Ltd.-MILL20220290

PATIENT
  Age: 56 Year
  Sex: Female

DRUGS (2)
  1. INTRAROSA [Suspect]
     Active Substance: PRASTERONE
     Indication: Dyspareunia
     Dosage: 1
     Route: 067
     Dates: start: 202205, end: 20220811
  2. CORTISONE [Suspect]
     Active Substance: CORTISONE
     Indication: Carpal tunnel syndrome
     Dosage: 1 INJECTION
     Route: 014
     Dates: start: 202203, end: 202206

REACTIONS (3)
  - Hair growth abnormal [Not Recovered/Not Resolved]
  - Blister [Not Recovered/Not Resolved]
  - Scar [Not Recovered/Not Resolved]

NARRATIVE: CASE EVENT DATE: 20220601
